FAERS Safety Report 19819417 (Version 1)
Quarter: 2021Q3

REPORT INFORMATION
  Report Type: Report from Study
  Country: None (occurrence: US)
  Receive Date: 20210913
  Receipt Date: 20210913
  Transmission Date: 20211014
  Serious: Yes (Other)
  Sender: FDA-Public Use
  Company Number: US-ABBVIE-21K-163-4036997-00

PATIENT
  Sex: Female

DRUGS (2)
  1. RINVOQ [Suspect]
     Active Substance: UPADACITINIB
     Indication: RHEUMATOID ARTHRITIS
     Route: 048
  2. METHOTREXATE. [Concomitant]
     Active Substance: METHOTREXATE
     Indication: PRODUCT USED FOR UNKNOWN INDICATION
     Route: 065

REACTIONS (15)
  - Fall [Unknown]
  - Injury [Unknown]
  - Facial pain [Recovered/Resolved]
  - Ear operation [Recovered/Resolved]
  - Back pain [Recovered/Resolved]
  - Pain [Recovering/Resolving]
  - Mobility decreased [Unknown]
  - Bone disorder [Not Recovered/Not Resolved]
  - Arthritis [Not Recovered/Not Resolved]
  - COVID-19 [Recovered/Resolved]
  - Ear pain [Recovered/Resolved]
  - Discomfort [Not Recovered/Not Resolved]
  - Inflammation [Recovering/Resolving]
  - Pain of skin [Recovered/Resolved]
  - Discomfort [Recovered/Resolved]
